FAERS Safety Report 24729104 (Version 2)
Quarter: 2025Q1

REPORT INFORMATION
  Report Type: Report from Study
  Country: US (occurrence: US)
  Receive Date: 20241213
  Receipt Date: 20250219
  Transmission Date: 20250409
  Serious: Yes (Other)
  Sender: ABBVIE
  Company Number: US-ABBVIE-6030504

PATIENT
  Age: 77 Year
  Sex: Male
  Weight: 97.52 kg

DRUGS (5)
  1. HUMIRA [Suspect]
     Active Substance: ADALIMUMAB
     Indication: Colitis ulcerative
     Dosage: FORM STRENGTH 40 MG
     Route: 058
     Dates: start: 20230926
  2. GABAPENTIN AN [Concomitant]
     Indication: Neuropathy peripheral
  3. METOPROLOL [Concomitant]
     Active Substance: METOPROLOL
     Indication: Atrial fibrillation
  4. ELIQUIS [Concomitant]
     Active Substance: APIXABAN
     Indication: Anticoagulant therapy
  5. ATORVASTATIN [Concomitant]
     Active Substance: ATORVASTATIN
     Indication: Blood cholesterol increased

REACTIONS (2)
  - Rectal fissure [Recovering/Resolving]
  - Rectal abscess [Recovered/Resolved]

NARRATIVE: CASE EVENT DATE: 20240101
